FAERS Safety Report 5909235-X (Version None)
Quarter: 2008Q4

REPORT INFORMATION
  Report Type: 
  Country: None (occurrence: None)
  Receive Date: 20081006
  Receipt Date: 20080930
  Transmission Date: 20090506
  Serious: Yes (Death, Hospitalization)
  Sender: FDA-Public Use
  Company Number: PHHY2008SE23264

PATIENT
  Sex: Male

DRUGS (1)
  1. LEPONEX [Suspect]
     Dosage: UNK
     Dates: start: 19880101

REACTIONS (5)
  - BLOOD CREATININE INCREASED [None]
  - DEATH [None]
  - DIALYSIS [None]
  - MALAISE [None]
  - RHABDOMYOLYSIS [None]
